FAERS Safety Report 12339717 (Version 3)
Quarter: 2016Q2

REPORT INFORMATION
  Report Type: Spontaneous
  Country: RO (occurrence: RO)
  Receive Date: 20160506
  Receipt Date: 20160622
  Transmission Date: 20160815
  Serious: Yes (Other)
  Sender: FDA-Public Use
  Company Number: RO-ROCHE-1741768

PATIENT
  Age: 56 Year
  Sex: Female
  Weight: 81 kg

DRUGS (8)
  1. PLAVIX [Concomitant]
     Active Substance: CLOPIDOGREL BISULFATE
     Route: 048
  2. AVASTIN [Suspect]
     Active Substance: BEVACIZUMAB
     Indication: RECTAL CANCER METASTATIC
     Route: 042
     Dates: start: 201512, end: 20160321
  3. ASPENTER [Concomitant]
     Active Substance: ASPIRIN
     Route: 048
  4. BETALOC [Concomitant]
     Active Substance: METOPROLOL TARTRATE
     Route: 048
  5. OXALIPLATIN. [Concomitant]
     Active Substance: OXALIPLATIN
  6. XELODA [Suspect]
     Active Substance: CAPECITABINE
     Indication: RECTAL CANCER METASTATIC
     Route: 048
  7. PRESTARIUM [Concomitant]
     Active Substance: PERINDOPRIL
     Route: 048
  8. CRESTOR [Concomitant]
     Active Substance: ROSUVASTATIN CALCIUM
     Route: 048

REACTIONS (1)
  - Pulmonary artery thrombosis [Recovering/Resolving]
